FAERS Safety Report 10727964 (Version 1)
Quarter: 2015Q1

REPORT INFORMATION
  Report Type: Spontaneous
  Country: NZ (occurrence: NZ)
  Receive Date: 20150121
  Receipt Date: 20150121
  Transmission Date: 20150721
  Serious: Yes (Death, Hospitalization)
  Sender: FDA-Public Use
  Company Number: PHHY2015NZ005903

PATIENT
  Age: 2 Year
  Weight: 11 kg

DRUGS (1)
  1. PARACETAMOL [Suspect]
     Active Substance: ACETAMINOPHEN
     Indication: PRODUCT USED FOR UNKNOWN INDICATION
     Dosage: 62 MG/KG, QD (6 HOURLY INTERVAL)
     Route: 065

REACTIONS (2)
  - Incorrect drug administration duration [Unknown]
  - Acute hepatic failure [Fatal]
